FAERS Safety Report 25942725 (Version 1)
Quarter: 2025Q4

REPORT INFORMATION
  Report Type: Spontaneous
  Country: EU (occurrence: EU)
  Receive Date: 20251021
  Receipt Date: 20251021
  Transmission Date: 20260118
  Serious: Yes (Other)
  Sender: BAXTER
  Company Number: None

PATIENT
  Age: 21 Month
  Sex: Female
  Weight: 8.7 kg

DRUGS (2)
  1. CALCIUM CHLORIDE\POTASSIUM CHLORIDE\SODIUM CHLORIDE\SODIUM LACTATE [Suspect]
     Active Substance: CALCIUM CHLORIDE\POTASSIUM CHLORIDE\SODIUM CHLORIDE\SODIUM LACTATE
     Indication: Product used for unknown indication
     Dosage: UNK
     Route: 042
     Dates: start: 20250911, end: 20250911
  2. CALCIUM GLUCONATE\DEXTROSE\POTASSIUM CHLORIDE\SODIUM CHLORIDE [Suspect]
     Active Substance: CALCIUM GLUCONATE\DEXTROSE\POTASSIUM CHLORIDE\SODIUM CHLORIDE
     Indication: Product used for unknown indication
     Dosage: UNK (DEXTRION LAVOISIER)
     Route: 042
     Dates: start: 20250911, end: 20250911

REACTIONS (3)
  - Infusion site extravasation [Recovered/Resolved]
  - Infusion site oedema [Recovered/Resolved]
  - Infusion site pain [Recovered/Resolved]

NARRATIVE: CASE EVENT DATE: 20250911
